FAERS Safety Report 16060095 (Version 2)
Quarter: 2019Q1

REPORT INFORMATION
  Report Type: Spontaneous
  Country: US (occurrence: US)
  Receive Date: 20190312
  Receipt Date: 20190320
  Transmission Date: 20190418
  Serious: No
  Sender: FDA-Public Use
  Company Number: US-ALEMBIC PHARMACUETICALS LIMITED-2019SCAL000115

PATIENT

DRUGS (4)
  1. DESVENLAFAXINE. [Suspect]
     Active Substance: DESVENLAFAXINE
     Indication: DEPRESSION
  2. BIOTIN [Concomitant]
     Active Substance: BIOTIN
     Indication: NAIL DISORDER
     Dosage: 10000 MICROGRAM
  3. DESVENLAFAXINE. [Suspect]
     Active Substance: DESVENLAFAXINE
     Indication: ANXIETY
     Dosage: 150 MILLIGRAM
  4. BIOTIN [Concomitant]
     Active Substance: BIOTIN
     Indication: HAIR DISORDER

REACTIONS (4)
  - Product substitution issue [Unknown]
  - Feeling abnormal [Recovered/Resolved]
  - Crying [Recovered/Resolved]
  - Drug ineffective [Unknown]
